FAERS Safety Report 4743666-9 (Version None)
Quarter: 2005Q3

REPORT INFORMATION
  Report Type: 
  Country: None (occurrence: None)
  Receive Date: 20050812
  Receipt Date: 20050804
  Transmission Date: 20060218
  Serious: Yes (Hospitalization)
  Sender: FDA-Public Use
  Company Number: JP-ABBOTT-05P-087-0307776-00

PATIENT
  Sex: Female

DRUGS (12)
  1. NORVIR [Suspect]
     Indication: HIV INFECTION
     Route: 048
     Dates: start: 20040401
  2. TENOFOVIR [Suspect]
     Indication: HIV INFECTION
     Route: 048
     Dates: start: 20040401
  3. ISOSORBIDE DINITRATE [Suspect]
     Indication: ARRHYTHMIA
     Route: 061
     Dates: start: 20040401
  4. LAMIVUDINE [Concomitant]
     Indication: HIV INFECTION
     Route: 048
     Dates: start: 20040401
  5. ATAZANAVIR [Concomitant]
     Indication: HIV INFECTION
     Route: 048
     Dates: start: 20040401
  6. CANDESARTAN CILEXETIL [Concomitant]
     Indication: HYPERTENSION
     Route: 048
     Dates: start: 20040401
  7. NIFEDIPINE [Concomitant]
     Indication: HYPERTENSION
     Route: 048
     Dates: start: 20040401
  8. CIPRALAN [Concomitant]
     Indication: HYPERTENSION
     Route: 048
     Dates: start: 20040401
  9. ASPIRIN [Concomitant]
     Indication: ARRHYTHMIA
     Route: 048
     Dates: start: 20040401
  10. BACTRIM [Concomitant]
     Indication: PNEUMOCYSTIS JIROVECI PNEUMONIA
     Route: 048
     Dates: start: 20040401
  11. NIFEDIPINE [Concomitant]
     Indication: HYPERTENSIVE EMERGENCY
     Route: 048
     Dates: start: 20040928, end: 20040929
  12. DILTIAZEM HYDROCHLORIDE [Concomitant]
     Indication: HYPERTENSION
     Route: 048
     Dates: start: 20041005

REACTIONS (2)
  - CHEST PAIN [None]
  - IRON DEFICIENCY ANAEMIA [None]
